FAERS Safety Report 18746086 (Version 1)
Quarter: 2021Q1

REPORT INFORMATION
  Report Type: Spontaneous
  Country: US (occurrence: US)
  Receive Date: 20210114
  Receipt Date: 20210114
  Transmission Date: 20210419
  Serious: Yes (Other)
  Sender: FDA-Public Use
  Company Number: None

PATIENT
  Age: 72 Year
  Sex: Male
  Weight: 110.7 kg

DRUGS (1)
  1. CHLORHEXIDINE ORAL RINSE 0.12% [Suspect]
     Active Substance: CHLORHEXIDINE GLUCONATE
     Indication: ANTIBIOTIC PROPHYLAXIS
     Route: 002
     Dates: start: 20201001, end: 20201023

REACTIONS (3)
  - Recalled product administered [None]
  - Staphylococcal sepsis [None]
  - Burkholderia test positive [None]

NARRATIVE: CASE EVENT DATE: 20201006
